FAERS Safety Report 11726936 (Version 1)
Quarter: 2015Q4

REPORT INFORMATION
  Report Type: Spontaneous
  Country: TR (occurrence: TR)
  Receive Date: 20151112
  Receipt Date: 20151112
  Transmission Date: 20160304
  Serious: Yes (Hospitalization, Other)
  Sender: FDA-Public Use
  Company Number: TR-WATSON-2015-23743

PATIENT
  Age: 37 Year
  Sex: Female

DRUGS (2)
  1. CHLORPHENIRAMINE MALEATE (WATSON LABORATORIES) [Suspect]
     Active Substance: CHLORPHENIRAMINE MALEATE
     Indication: SKIN TEST
     Dosage: 1 DF, AMPOULE, SINGLE
     Route: 042
  2. CHLORPHENIRAMINE MALEATE (WATSON LABORATORIES) [Suspect]
     Active Substance: CHLORPHENIRAMINE MALEATE
     Indication: ALLERGY PROPHYLAXIS
     Dosage: 0.227 MG/ML, SINGLE
     Route: 023

REACTIONS (2)
  - Hypersensitivity [Recovered/Resolved]
  - Anaphylactic reaction [Recovered/Resolved]
